FAERS Safety Report 4505919-9 (Version None)
Quarter: 2004Q4

REPORT INFORMATION
  Report Type: 
  Country: None (occurrence: None)
  Receive Date: 20041025
  Receipt Date: 20031027
  Transmission Date: 20050328
  Serious: Yes (Hospitalization)
  Sender: FDA-Public Use
  Company Number: US-JNJFOC-20030900932

PATIENT
  Age: 73 Year
  Sex: Male
  Weight: 116.3023 kg

DRUGS (10)
  1. REMICADE [Suspect]
     Indication: RHEUMATOID ARTHRITIS
     Dosage: INTRAVENOUS
     Route: 042
     Dates: start: 20030822
  2. PREDNISONE [Concomitant]
  3. METHOTREXATE [Concomitant]
  4. FOLIC ACID [Concomitant]
  5. CELEBREX [Concomitant]
  6. SULFASALAZINE [Concomitant]
  7. LOPRESSOR [Concomitant]
  8. ALTACE [Concomitant]
  9. ATROVENT [Concomitant]
  10. SOMATOSTATIN (SOMATOSTATIN) [Concomitant]

REACTIONS (3)
  - HYPERTENSION [None]
  - PLEURAL EFFUSION [None]
  - STAPHYLOCOCCAL INFECTION [None]
